FAERS Safety Report 9775871 (Version 2)
Quarter: 2013Q4

REPORT INFORMATION
  Report Type: Spontaneous
  Country: JP (occurrence: JP)
  Receive Date: 20131220
  Receipt Date: 20131230
  Transmission Date: 20140711
  Serious: Yes (Other)
  Sender: FDA-Public Use
  Company Number: JP-GLAXOSMITHKLINE-B0938505A

PATIENT
  Age: 32 Year
  Sex: Female

DRUGS (24)
  1. LAMICTAL [Suspect]
     Indication: EPILEPSY
     Dosage: 50MG PER DAY
     Route: 048
     Dates: start: 20111105, end: 20111118
  2. LAMICTAL [Suspect]
     Indication: EPILEPSY
     Dosage: 100MG PER DAY
     Route: 048
     Dates: start: 20111119, end: 20111202
  3. LAMICTAL [Suspect]
     Indication: EPILEPSY
     Dosage: 150MG PER DAY
     Route: 048
     Dates: start: 20111203, end: 20111216
  4. LAMICTAL [Suspect]
     Indication: EPILEPSY
     Dosage: 200MG PER DAY
     Route: 048
     Dates: start: 20111217, end: 20120315
  5. LAMICTAL [Suspect]
     Indication: EPILEPSY
     Dosage: 250MG PER DAY
     Route: 048
     Dates: start: 20120316, end: 20121110
  6. LAMICTAL [Suspect]
     Indication: EPILEPSY
     Dosage: 150MG TWICE PER DAY
     Route: 048
     Dates: start: 20121111, end: 20130209
  7. LAMICTAL [Suspect]
     Indication: EPILEPSY
     Dosage: 350MG PER DAY
     Route: 048
     Dates: start: 20130210, end: 20130511
  8. LAMICTAL [Suspect]
     Indication: EPILEPSY
     Dosage: 150MG TWICE PER DAY
     Route: 048
     Dates: start: 20130512
  9. E KEPPRA [Suspect]
     Dosage: 3000MG PER DAY
     Route: 048
     Dates: start: 201101, end: 20111104
  10. E KEPPRA [Suspect]
     Dosage: 2000MG PER DAY
     Route: 048
     Dates: start: 20111105, end: 20111118
  11. E KEPPRA [Suspect]
     Route: 048
     Dates: start: 20111119, end: 20111202
  12. TEGRETOL [Concomitant]
     Indication: EPILEPSY
     Dosage: 400MG TWICE PER DAY
     Route: 048
  13. RIVOTRIL [Concomitant]
     Indication: EPILEPSY
     Route: 048
     Dates: end: 201003
  14. RIVOTRIL [Concomitant]
     Indication: EPILEPSY
     Route: 048
     Dates: start: 201003, end: 20120630
  15. RIVOTRIL [Concomitant]
     Indication: EPILEPSY
     Route: 048
     Dates: start: 20120701, end: 20120930
  16. RIVOTRIL [Concomitant]
     Indication: EPILEPSY
     Route: 048
     Dates: start: 20121001, end: 20121110
  17. RIVOTRIL [Concomitant]
     Indication: EPILEPSY
     Route: 048
     Dates: start: 20121111, end: 20121208
  18. RIVOTRIL [Concomitant]
     Indication: EPILEPSY
     Route: 048
     Dates: start: 20121209, end: 20130112
  19. RIVOTRIL [Concomitant]
     Indication: EPILEPSY
     Route: 048
     Dates: start: 20130113, end: 20130316
  20. RIVOTRIL [Concomitant]
     Indication: EPILEPSY
     Route: 048
     Dates: start: 20130317
  21. ZINC ACETATE [Concomitant]
     Indication: HEPATO-LENTICULAR DEGENERATION
     Dosage: 50MG THREE TIMES PER DAY
     Route: 048
  22. MAGNESIUM OXIDE [Concomitant]
     Indication: CONSTIPATION
     Dosage: 1G TWICE PER DAY
     Route: 048
  23. FERRUM [Concomitant]
     Route: 048
     Dates: end: 20120623
  24. CHINESE MEDICINE [Concomitant]
     Route: 048
     Dates: end: 201211

REACTIONS (5)
  - Complex partial seizures [Unknown]
  - Grand mal convulsion [Unknown]
  - Aggression [Unknown]
  - Madarosis [Recovered/Resolved]
  - Trichotillomania [Unknown]
